FAERS Safety Report 5762003-4 (Version None)
Quarter: 2008Q2

REPORT INFORMATION
  Report Type: 
  Country: None (occurrence: None)
  Receive Date: 20080603
  Receipt Date: 20080519
  Transmission Date: 20081010
  Serious: Yes (Other)
  Sender: FDA-Public Use
  Company Number: 220003L08FRA

PATIENT
  Age: 11 Year
  Sex: Female

DRUGS (1)
  1. SOMATROPIN (SOMATROPIN) [Suspect]
     Indication: GROWTH RETARDATION
     Dosage: 0.3 MG/KG, 6 IN 1 WEEKS

REACTIONS (5)
  - ANAEMIA [None]
  - HYPERLACTACIDAEMIA [None]
  - NERVOUS SYSTEM DISORDER [None]
  - RENAL TUBULAR DISORDER [None]
  - VISUAL ACUITY REDUCED [None]
